FAERS Safety Report 15577304 (Version 2)
Quarter: 2018Q4

REPORT INFORMATION
  Report Type: Spontaneous
  Country: US (occurrence: US)
  Receive Date: 20181102
  Receipt Date: 20181206
  Transmission Date: 20190205
  Serious: No
  Sender: FDA-Public Use
  Company Number: US-ASTRAZENECA-2018SF30247

PATIENT
  Sex: Female
  Weight: 68 kg

DRUGS (1)
  1. BEVESPI AEROSPHERE [Suspect]
     Active Substance: FORMOTEROL FUMARATE\GLYCOPYRROLATE
     Indication: BRONCHITIS CHRONIC
     Dosage: 9 MCG/4.8 MCG, TWO PUFFS TWICE DAILY
     Route: 055
     Dates: start: 201802

REACTIONS (5)
  - Cough [Unknown]
  - Wrong technique in product usage process [Unknown]
  - Underdose [Unknown]
  - Intentional product misuse [Unknown]
  - Device malfunction [Unknown]
